FAERS Safety Report 9349545 (Version 1)
Quarter: 2013Q2

REPORT INFORMATION
  Report Type: Spontaneous
  Country: FR (occurrence: FR)
  Receive Date: 20130614
  Receipt Date: 20130614
  Transmission Date: 20140414
  Serious: Yes (Hospitalization)
  Sender: FDA-Public Use
  Company Number: FR-GLAXOSMITHKLINE-B0896835A

PATIENT
  Age: 44 Year
  Sex: Female

DRUGS (10)
  1. TYVERB [Suspect]
     Indication: BREAST CANCER METASTATIC
     Route: 048
     Dates: start: 20130427, end: 20130509
  2. XELODA [Suspect]
     Indication: BREAST CANCER METASTATIC
     Route: 048
     Dates: start: 20130427, end: 20130509
  3. ZOMETA [Suspect]
     Indication: HYPERCALCAEMIA OF MALIGNANCY
     Route: 042
     Dates: start: 20130506, end: 20130506
  4. SOLUMEDROL [Concomitant]
     Indication: BREAST CANCER METASTATIC
     Dates: start: 20130320
  5. OXYCONTIN [Concomitant]
     Indication: BREAST CANCER METASTATIC
     Dates: start: 20130320
  6. OXYNORM [Concomitant]
     Indication: BREAST CANCER METASTATIC
     Dates: start: 20130320
  7. LYRICA [Concomitant]
     Indication: BREAST CANCER METASTATIC
  8. HERCEPTIN [Concomitant]
     Indication: BREAST CANCER
     Dates: start: 20130307
  9. NAVELBINE [Concomitant]
     Indication: BREAST CANCER
     Dates: start: 20130307
  10. RADIOTHERAPY [Concomitant]
     Indication: BREAST CANCER METASTATIC
     Dates: start: 20130320, end: 20130416

REACTIONS (4)
  - Toxic skin eruption [Recovering/Resolving]
  - Hypersensitivity [Recovering/Resolving]
  - Skin lesion [Recovering/Resolving]
  - Pruritus [Recovered/Resolved]
